FAERS Safety Report 9364582 (Version 1)
Quarter: 2013Q2

REPORT INFORMATION
  Report Type: Spontaneous
  Country: FR (occurrence: None)
  Receive Date: 20130619
  Receipt Date: 20130619
  Transmission Date: 20140414
  Serious: Yes (Life-Threatening, Hospitalization)
  Sender: FDA-Public Use
  Company Number: 2013CP000066

PATIENT
  Age: 2 Month
  Sex: Female

DRUGS (3)
  1. PERFALGAN [Suspect]
     Route: 042
     Dates: start: 20121122, end: 20121124
  2. CEFOTAXIME [Suspect]
     Route: 042
     Dates: start: 20121122, end: 20121124
  3. GASTROGRAFIN [Suspect]
     Route: 054
     Dates: start: 20121122

REACTIONS (1)
  - Acute respiratory distress syndrome [None]
